FAERS Safety Report 20623178 (Version 2)
Quarter: 2023Q1

REPORT INFORMATION
  Report Type: Spontaneous
  Country: US (occurrence: US)
  Receive Date: 20220322
  Receipt Date: 20230322
  Transmission Date: 20230417
  Serious: No
  Sender: FDA-Public Use
  Company Number: US-ALLERGAN-2205113US

PATIENT
  Sex: Female

DRUGS (1)
  1. LATISSE [Suspect]
     Active Substance: BIMATOPROST
     Indication: Growth of eyelashes
     Dosage: UNK
     Dates: start: 202111

REACTIONS (4)
  - Eye allergy [Unknown]
  - Inappropriate schedule of product administration [Unknown]
  - Eye discharge [Not Recovered/Not Resolved]
  - Drug ineffective [Unknown]
